FAERS Safety Report 17543300 (Version 1)
Quarter: 2020Q1

REPORT INFORMATION
  Report Type: Spontaneous
  Country: US (occurrence: US)
  Receive Date: 20200306
  Receipt Date: 20200306
  Transmission Date: 20200409
  Serious: Yes (Hospitalization)
  Sender: FDA-Public Use
  Company Number: None

PATIENT
  Age: 33 Year
  Sex: Female

DRUGS (26)
  1. GLATOPA [Concomitant]
     Active Substance: GLATIRAMER ACETATE
  2. LORAZEPAM. [Concomitant]
     Active Substance: LORAZEPAM
  3. ALBUTEROL AER HFA [Concomitant]
  4. ONDANSETRON [Concomitant]
     Active Substance: ONDANSETRON
  5. DOXYCYC MONO [Concomitant]
     Active Substance: DOXYCYCLINE
  6. GLATIRAMER 40MG/ML SYR [Suspect]
     Active Substance: GLATIRAMER
     Indication: MULTIPLE SCLEROSIS
     Route: 058
     Dates: start: 20190110
  7. CITALOPRAM [Concomitant]
     Active Substance: CITALOPRAM HYDROBROMIDE
  8. IPRATROPIUM/SOL ALBUTER [Concomitant]
  9. CHANTIX [Concomitant]
     Active Substance: VARENICLINE TARTRATE
  10. SUBOXONE [Concomitant]
     Active Substance: BUPRENORPHINE HYDROCHLORIDE\NALOXONE HYDROCHLORIDE
  11. LINSINOPRIL [Concomitant]
     Active Substance: LISINOPRIL
  12. BACLOFEN. [Concomitant]
     Active Substance: BACLOFEN
  13. BUPREN/NALOX MIS [Concomitant]
  14. LEVOTHYROXINE. [Concomitant]
     Active Substance: LEVOTHYROXINE
  15. AZYTHROMYCIN [Concomitant]
     Active Substance: AZITHROMYCIN ANHYDROUS
  16. BUPROPN HCL [Concomitant]
     Active Substance: BUPROPION HYDROCHLORIDE
  17. METFORMIN [Concomitant]
     Active Substance: METFORMIN HYDROCHLORIDE
  18. ARMODAFINIL. [Concomitant]
     Active Substance: ARMODAFINIL
  19. PRAZOSIN HCL [Concomitant]
     Active Substance: PRAZOSIN HYDROCHLORIDE
  20. SPIRONOLACT [Concomitant]
     Active Substance: SPIRONOLACTONE
  21. FUROSEMIDE. [Concomitant]
     Active Substance: FUROSEMIDE
  22. CIPROFLOXACIN. [Concomitant]
     Active Substance: CIPROFLOXACIN
  23. PREDNISONE. [Concomitant]
     Active Substance: PREDNISONE
  24. BENZONATATE. [Concomitant]
     Active Substance: BENZONATATE
  25. TERBINAFINE. [Concomitant]
     Active Substance: TERBINAFINE
  26. OMEPRAZOLE. [Concomitant]
     Active Substance: OMEPRAZOLE

REACTIONS (1)
  - Multiple sclerosis relapse [None]

NARRATIVE: CASE EVENT DATE: 20200201
